FAERS Safety Report 25831838 (Version 1)
Quarter: 2025Q3

REPORT INFORMATION
  Report Type: Spontaneous
  Country: US (occurrence: None)
  Receive Date: 20250921
  Receipt Date: 20250921
  Transmission Date: 20251020
  Serious: Yes (Hospitalization, Disabling, Other)
  Sender: FDA-CTU
  Company Number: None

PATIENT
  Age: 56 Year
  Sex: Female
  Weight: 47.25 kg

DRUGS (1)
  1. EFFEXOR [Suspect]
     Active Substance: VENLAFAXINE HYDROCHLORIDE

REACTIONS (18)
  - Abdominal pain upper [None]
  - Anxiety [None]
  - Depression [None]
  - Akathisia [None]
  - Pain [None]
  - Job dissatisfaction [None]
  - Hypophagia [None]
  - Insomnia [None]
  - Activities of daily living decreased [None]
  - Hormone level abnormal [None]
  - Chronic fatigue syndrome [None]
  - Brain fog [None]
  - Cognitive disorder [None]
  - Memory impairment [None]
  - Irritable bowel syndrome [None]
  - Loss of libido [None]
  - Emotional disorder [None]
  - Drug withdrawal syndrome [None]

NARRATIVE: CASE EVENT DATE: 20211001
